FAERS Safety Report 4686790-1 (Version None)
Quarter: 2005Q2

REPORT INFORMATION
  Report Type: 
  Country: None (occurrence: None)
  Receive Date: 20050608
  Receipt Date: 20050526
  Transmission Date: 20051028
  Serious: Yes (Other)
  Sender: FDA-Public Use
  Company Number: DE-2005-009075

PATIENT
  Sex: Female

DRUGS (1)
  1. MIRENA [Suspect]
     Dosage: 20 UG/DAY, INTRA-UTERINE
     Route: 015
     Dates: start: 20050215

REACTIONS (4)
  - CONDITION AGGRAVATED [None]
  - METRORRHAGIA [None]
  - UTERINE LEIOMYOMA [None]
  - VAGINAL DISCHARGE [None]
